FAERS Safety Report 9748940 (Version 2)
Quarter: 2013Q4

REPORT INFORMATION
  Report Type: Spontaneous
  Country: US (occurrence: US)
  Receive Date: 20131212
  Receipt Date: 20131212
  Transmission Date: 20140711
  Serious: No
  Sender: FDA-Public Use
  Company Number: US-INCYTE CORPORATION-2012IN001115

PATIENT
  Age: 65 Year
  Sex: Female

DRUGS (6)
  1. JAKAFI [Suspect]
     Indication: POLYCYTHAEMIA VERA
     Dosage: 10 MG, BID
     Route: 048
  2. JAKAFI [Suspect]
     Indication: MYELOFIBROSIS
  3. TRILEPTAL [Concomitant]
     Dosage: 150 MG IN A.M.; 300 MG IN P.M.
  4. MULTIVITAMINS, PLAIN [Concomitant]
     Dosage: 1 DF, QD
  5. VITAMIN C [Concomitant]
     Dosage: UNK, QD
  6. CEFTIN [Concomitant]
     Dosage: 500 MG, BID
     Dates: start: 20120518

REACTIONS (3)
  - Neuropathy peripheral [Not Recovered/Not Resolved]
  - Paraesthesia [Not Recovered/Not Resolved]
  - Contusion [Not Recovered/Not Resolved]
